FAERS Safety Report 24451283 (Version 2)
Quarter: 2024Q4

REPORT INFORMATION
  Report Type: Spontaneous
  Country: US (occurrence: US)
  Receive Date: 20241017
  Receipt Date: 20241028
  Transmission Date: 20250115
  Serious: Yes (Life-Threatening, Hospitalization, Other)
  Sender: SANDOZ
  Company Number: US-SANDOZ-SDZ2024US087714

PATIENT
  Age: 62 Year
  Sex: Male

DRUGS (3)
  1. CARBOXYMETHYLCELLULOSE [Suspect]
     Active Substance: CARBOXYMETHYLCELLULOSE
     Indication: Product used for unknown indication
     Dosage: UNK
     Route: 065
  2. TRIAMCINOLONE ACETONIDE [Suspect]
     Active Substance: TRIAMCINOLONE ACETONIDE
     Indication: Osteoarthritis
     Dosage: UNK, INTRAARTICULAR SHOULDER INJECTION
     Route: 014
     Dates: start: 201912
  3. LIDOCAINE [Concomitant]
     Active Substance: LIDOCAINE
     Indication: Osteoarthritis
     Dosage: UNK, INTRAARTICULAR SHOULDER INJECTION
     Route: 014
     Dates: start: 201912

REACTIONS (2)
  - Anaphylactic shock [Unknown]
  - Hypersensitivity [Unknown]

NARRATIVE: CASE EVENT DATE: 20191201
